FAERS Safety Report 6258782-2 (Version None)
Quarter: 2009Q3

REPORT INFORMATION
  Report Type: 
  Country: None (occurrence: None)
  Receive Date: 20090707
  Receipt Date: 20090626
  Transmission Date: 20100115
  Serious: Yes (Hospitalization, Disabling)
  Sender: FDA-Public Use
  Company Number: US-MERCK-0810USA03090

PATIENT
  Age: 70 Year
  Sex: Female
  Weight: 70 kg

DRUGS (1)
  1. FOSAMAX [Suspect]
     Indication: OSTEOPOROSIS
     Route: 048
     Dates: start: 20021001, end: 20070401

REACTIONS (15)
  - ADVERSE DRUG REACTION [None]
  - BLOOD CHOLESTEROL INCREASED [None]
  - FALL [None]
  - GASTRIC DISORDER [None]
  - HYPERLIPIDAEMIA [None]
  - HYPOAESTHESIA [None]
  - IMPAIRED HEALING [None]
  - JAW DISORDER [None]
  - ORAL DISORDER [None]
  - ORAL INFECTION [None]
  - ORAL PAIN [None]
  - PAIN [None]
  - STOMATITIS [None]
  - TRISMUS [None]
  - VERTIGO [None]
